FAERS Safety Report 5412737-6 (Version None)
Quarter: 2007Q3

REPORT INFORMATION
  Report Type: 
  Country: None (occurrence: None)
  Receive Date: 20070813
  Receipt Date: 20070808
  Transmission Date: 20080115
  Serious: Yes (Other)
  Sender: FDA-Public Use
  Company Number: US-PURDUE-USA_2007_0027655

PATIENT
  Sex: Male
  Weight: 91 kg

DRUGS (6)
  1. OXYCONTIN [Suspect]
     Indication: PAIN
     Dosage: UNK, SEE TEXT
     Dates: start: 19991001, end: 20030102
  2. PERCOCET [Concomitant]
     Dates: start: 19990809, end: 19990902
  3. ZOLOFT [Concomitant]
     Dates: start: 20020101
  4. AMBIEN [Concomitant]
     Dates: start: 20020101
  5. XANAX [Concomitant]
     Dates: start: 20020101
  6. VIOXX [Concomitant]
     Dosage: 25 MG, UNK

REACTIONS (7)
  - ANXIETY [None]
  - DEPRESSION [None]
  - DRUG DEPENDENCE [None]
  - HIP ARTHROPLASTY [None]
  - INSOMNIA [None]
  - KNEE OPERATION [None]
  - MULTIPLE INJURIES [None]
